FAERS Safety Report 11279454 (Version 1)
Quarter: 2015Q3

REPORT INFORMATION
  Report Type: Spontaneous
  Country: US (occurrence: None)
  Receive Date: 20150715
  Receipt Date: 20150715
  Transmission Date: 20151125
  Serious: Yes (Life-Threatening, Hospitalization, Other)
  Sender: FDA-Public Use
  Company Number: BR15-183-AE

PATIENT
  Age: 3 Year
  Sex: Male

DRUGS (1)
  1. BUPRENORPHINE HCL AND NALOXONE HCL [Suspect]
     Active Substance: BUPRENORPHINE\NALOXONE
     Route: 060

REACTIONS (14)
  - Opiates positive [None]
  - Brain injury [None]
  - Pyrexia [None]
  - Wheelchair user [None]
  - General physical health deterioration [None]
  - Apparent death [None]
  - Ataxia [None]
  - Seizure [None]
  - Overdose [None]
  - Victim of child abuse [None]
  - Vomiting [None]
  - Aphasia [None]
  - Accidental exposure to product by child [None]
  - Somnolence [None]

NARRATIVE: CASE EVENT DATE: 20140522
